FAERS Safety Report 5882896-X (Version None)
Quarter: 2008Q3

REPORT INFORMATION
  Report Type: 
  Country: None (occurrence: None)
  Receive Date: 20080913
  Receipt Date: 20080818
  Transmission Date: 20090109
  Serious: No
  Sender: FDA-Public Use
  Company Number: US-ABBOTT-08P-163-0471874-00

PATIENT
  Sex: Male
  Weight: 72.64 kg

DRUGS (7)
  1. HUMIRA [Suspect]
     Indication: CROHN'S DISEASE
     Route: 050
     Dates: start: 20080623
  2. MERCAPTOPURINE [Concomitant]
     Indication: CROHN'S DISEASE
     Route: 048
     Dates: end: 20080804
  3. MERCAPTOPURINE [Concomitant]
     Route: 048
     Dates: start: 20080804
  4. CYPROHEPTADINE HYDROCHLORIDE [Concomitant]
     Indication: DIARRHOEA
     Route: 048
     Dates: start: 20080728
  5. ANTI-DEPRESSANT [Concomitant]
     Indication: DEPRESSION
  6. PREDNISONE TAB [Concomitant]
     Indication: INFLAMMATION
     Route: 048
  7. PLANTAGO OVATA [Concomitant]
     Indication: GASTROINTESTINAL DISORDER
     Route: 048

REACTIONS (2)
  - DIARRHOEA [None]
  - WEIGHT DECREASED [None]
